FAERS Safety Report 11318142 (Version 1)
Quarter: 2015Q3

REPORT INFORMATION
  Report Type: Spontaneous
  Country: AU (occurrence: AU)
  Receive Date: 20150728
  Receipt Date: 20150728
  Transmission Date: 20151125
  Serious: Yes (Other)
  Sender: FDA-Public Use
  Company Number: AU-BAXTER-2015BAX040228

PATIENT
  Age: 2 Year
  Sex: Male

DRUGS (10)
  1. ENDOXAN CYCLOPHOSPHAMIDE 2G (AS MONOHYDRATE) POWDER FOR INJECTION VIAL [Suspect]
     Active Substance: CYCLOPHOSPHAMIDE
     Indication: OCULAR CANCER METASTATIC
     Route: 065
  2. DEXAMETHASONE. [Concomitant]
     Active Substance: DEXAMETHASONE
     Indication: CELLULITIS ORBITAL
     Route: 065
  3. ENDOXAN CYCLOPHOSPHAMIDE 2G (AS MONOHYDRATE) POWDER FOR INJECTION VIAL [Suspect]
     Active Substance: CYCLOPHOSPHAMIDE
     Indication: RETINOBLASTOMA
  4. VINCRISTINE [Suspect]
     Active Substance: VINCRISTINE
     Indication: OCULAR CANCER METASTATIC
     Route: 065
  5. CISPLATIN. [Suspect]
     Active Substance: CISPLATIN
     Indication: OCULAR CANCER METASTATIC
     Route: 065
  6. CISPLATIN. [Suspect]
     Active Substance: CISPLATIN
     Indication: RETINOBLASTOMA
  7. VINCRISTINE [Suspect]
     Active Substance: VINCRISTINE
     Indication: RETINOBLASTOMA
  8. ETOPOSIDE. [Suspect]
     Active Substance: ETOPOSIDE
     Indication: RETINOBLASTOMA
  9. MELPHALAN [Suspect]
     Active Substance: MELPHALAN
     Indication: RETINOBLASTOMA
     Route: 013
  10. ETOPOSIDE. [Suspect]
     Active Substance: ETOPOSIDE
     Indication: OCULAR CANCER METASTATIC
     Route: 065

REACTIONS (3)
  - Iris adhesions [Recovering/Resolving]
  - Retinal detachment [Recovering/Resolving]
  - Pancytopenia [Unknown]
